FAERS Safety Report 23400159 (Version 1)
Quarter: 2024Q1

REPORT INFORMATION
  Report Type: Report from Study
  Country: ZA (occurrence: ZA)
  Receive Date: 20240114
  Receipt Date: 20240114
  Transmission Date: 20240410
  Serious: Yes (Death)
  Sender: FDA-Public Use
  Company Number: ZA-ABBVIE-5585017

PATIENT
  Age: 74 Year
  Sex: Male

DRUGS (1)
  1. VENCLEXTA [Suspect]
     Active Substance: VENETOCLAX
     Indication: Acute myeloid leukaemia
     Dosage: 100 MILLIGRAM
     Route: 048
     Dates: start: 20220826

REACTIONS (1)
  - Death [Fatal]

NARRATIVE: CASE EVENT DATE: 20231201
